FAERS Safety Report 23760974 (Version 1)
Quarter: 2024Q2

REPORT INFORMATION
  Report Type: Spontaneous
  Country: TR (occurrence: TR)
  Receive Date: 20240419
  Receipt Date: 20240419
  Transmission Date: 20240716
  Serious: Yes (Life-Threatening, Hospitalization)
  Sender: FDA-Public Use
  Company Number: TR-MACLEODS PHARMA-MAC2024046900

PATIENT
  Age: 41 Year
  Sex: Male
  Weight: 65 kg

DRUGS (2)
  1. METHIMAZOLE [Suspect]
     Active Substance: METHIMAZOLE
     Indication: Hyperthyroidism
     Route: 065
  2. PROPRANOLOL [Concomitant]
     Active Substance: PROPRANOLOL HYDROCHLORIDE
     Indication: Product used for unknown indication
     Route: 065

REACTIONS (12)
  - Multiple organ dysfunction syndrome [Recovering/Resolving]
  - Disseminated intravascular coagulation [Recovering/Resolving]
  - Acute respiratory distress syndrome [Recovering/Resolving]
  - Sepsis [Recovering/Resolving]
  - Depressed level of consciousness [Recovering/Resolving]
  - Metabolic acidosis [Recovering/Resolving]
  - Atrial fibrillation [Recovering/Resolving]
  - Haemodynamic instability [Recovering/Resolving]
  - Acute pulmonary oedema [Recovering/Resolving]
  - Hypoxia [Recovering/Resolving]
  - Lactic acidosis [Recovering/Resolving]
  - Hepatorenal syndrome [Recovering/Resolving]
